FAERS Safety Report 14482410 (Version 3)
Quarter: 2018Q2

REPORT INFORMATION
  Report Type: Spontaneous
  Country: US (occurrence: US)
  Receive Date: 20180202
  Receipt Date: 20180516
  Transmission Date: 20180711
  Serious: No
  Sender: FDA-Public Use
  Company Number: US-BIOGEN-2018BI00517508

PATIENT
  Sex: Female

DRUGS (1)
  1. TECFIDERA [Suspect]
     Active Substance: DIMETHYL FUMARATE
     Indication: MULTIPLE SCLEROSIS
     Dosage: MAINTENANCE DOSE
     Route: 048
     Dates: start: 2016, end: 201804

REACTIONS (6)
  - Amnesia [Unknown]
  - Flushing [Unknown]
  - Drug dose omission [Unknown]
  - Depression [Unknown]
  - Cognitive disorder [Unknown]
  - Feeling abnormal [Unknown]
